FAERS Safety Report 10804554 (Version 1)
Quarter: 2015Q1

REPORT INFORMATION
  Report Type: Report from Study
  Country: US (occurrence: US)
  Receive Date: 20150217
  Receipt Date: 20150217
  Transmission Date: 20150721
  Serious: No
  Sender: FDA-Public Use
  Company Number: US-ABBVIE-14K-163-1240817-00

PATIENT
  Age: 39 Year
  Sex: Female

DRUGS (7)
  1. HUMIRA [Suspect]
     Active Substance: ADALIMUMAB
     Dates: start: 20140407, end: 20140407
  2. HUMIRA [Suspect]
     Active Substance: ADALIMUMAB
     Indication: PSORIASIS
     Dates: start: 20140331, end: 20140331
  3. HUMIRA [Suspect]
     Active Substance: ADALIMUMAB
  4. UNKNOWN ALLERGY MEDICATION [Concomitant]
     Indication: PRODUCT USED FOR UNKNOWN INDICATION
     Dosage: OVER THE COUNTER, PILL
  5. UNKNOWN BODY MEDICATION [Concomitant]
     Indication: PSORIASIS
  6. UNKNOWN FACE MEDICATION [Concomitant]
     Indication: PSORIASIS
  7. DERMA SMOOTHE [Concomitant]
     Indication: PSORIASIS

REACTIONS (2)
  - Abdominal pain upper [Not Recovered/Not Resolved]
  - Nausea [Not Recovered/Not Resolved]

NARRATIVE: CASE EVENT DATE: 20140519
